FAERS Safety Report 19441961 (Version 4)
Quarter: 2021Q3

REPORT INFORMATION
  Report Type: Report from Study
  Country: DE (occurrence: DE)
  Receive Date: 20210621
  Receipt Date: 20210720
  Transmission Date: 20211014
  Serious: Yes (Hospitalization)
  Sender: FDA-Public Use
  Company Number: DE-BIOGEN-2021BI01021460

PATIENT
  Age: 38 Year
  Sex: Female

DRUGS (6)
  1. CORTISONE [Suspect]
     Active Substance: CORTISONE
     Route: 042
     Dates: start: 20210628, end: 20210630
  2. PLEGRIDY [Suspect]
     Active Substance: PEGINTERFERON BETA-1A
     Indication: MULTIPLE SCLEROSIS
     Route: 058
     Dates: start: 20200814
  3. PLEGRIDY [Suspect]
     Active Substance: PEGINTERFERON BETA-1A
     Route: 058
     Dates: start: 20200814
  4. COVID?19 VACCINE NOS. [Suspect]
     Active Substance: COVID-19 VACCINE NOS
     Indication: COVID-19 PROPHYLAXIS
     Route: 065
  5. CORTISONE [Suspect]
     Active Substance: CORTISONE
     Dosage: TAPERING IT OFF TO WITH 75 MG
     Route: 048
     Dates: start: 20210619, end: 202106
  6. CORTISONE [Suspect]
     Active Substance: CORTISONE
     Indication: MULTIPLE SCLEROSIS RELAPSE
     Route: 042
     Dates: start: 20210616, end: 20210618

REACTIONS (5)
  - Inner ear disorder [Recovered/Resolved]
  - Vaccination complication [Unknown]
  - Multiple sclerosis relapse [Recovered/Resolved]
  - Pain [Not Recovered/Not Resolved]
  - Swelling face [Not Recovered/Not Resolved]

NARRATIVE: CASE EVENT DATE: 20210608
